FAERS Safety Report 5697573-8 (Version None)
Quarter: 2008Q2

REPORT INFORMATION
  Report Type: 
  Country: None (occurrence: None)
  Receive Date: 20080408
  Receipt Date: 20080331
  Transmission Date: 20081010
  Serious: Yes (Life-Threatening, Hospitalization)
  Sender: FDA-Public Use
  Company Number: AT-GENENTECH-258466

PATIENT
  Sex: Male
  Weight: 68 kg

DRUGS (2)
  1. BEVACIZUMAB [Suspect]
     Indication: COLON CANCER
     Dosage: UNK, Q3W
     Route: 042
     Dates: start: 20080107
  2. CAPECITABINE [Suspect]
     Indication: COLON CANCER
     Dosage: UNK, BID
     Route: 048
     Dates: start: 20080107

REACTIONS (2)
  - COLONIC FISTULA [None]
  - GASTROINTESTINAL NECROSIS [None]
